FAERS Safety Report 5515612-1 (Version None)
Quarter: 2007Q4

REPORT INFORMATION
  Report Type: 
  Country: None (occurrence: None)
  Receive Date: 20071113
  Receipt Date: 20070703
  Transmission Date: 20080405
  Serious: No
  Sender: FDA-Public Use
  Company Number: A0661436A

PATIENT
  Age: 50 Year
  Sex: Male

DRUGS (6)
  1. COREG [Suspect]
     Dosage: 6.25MG TWICE PER DAY
     Route: 048
     Dates: start: 19961001
  2. AVAPRO [Concomitant]
  3. CRESTOR [Concomitant]
  4. PROTONIX [Concomitant]
  5. ENTOCORT EC [Concomitant]
  6. ASPIRIN [Concomitant]

REACTIONS (1)
  - SOMNOLENCE [None]
